FAERS Safety Report 9054995 (Version 1)
Quarter: 2013Q1

REPORT INFORMATION
  Report Type: Spontaneous
  Country: FI (occurrence: FI)
  Receive Date: 20130206
  Receipt Date: 20130206
  Transmission Date: 20140127
  Serious: Yes (Death, Life-Threatening, Hospitalization)
  Sender: FDA-Public Use
  Company Number: FI-MERCK-1302FIN001330

PATIENT
  Age: 51 None
  Sex: Male

DRUGS (2)
  1. PEGINTRON [Suspect]
     Indication: HEPATITIS C
     Dosage: 120 MICROGRAM 0.45 ML FROM THE PEN, WEELY
     Dates: start: 201208, end: 201301
  2. REBETOL [Suspect]
     Indication: HEPATITIS C
     Dosage: 2 DF, BID
     Route: 048
     Dates: start: 201208, end: 201301

REACTIONS (4)
  - Staphylococcal sepsis [Fatal]
  - Ascites [Fatal]
  - General physical health deterioration [Unknown]
  - Muscular weakness [Unknown]
